FAERS Safety Report 24377502 (Version 1)
Quarter: 2024Q3

REPORT INFORMATION
  Report Type: Spontaneous
  Country: GB (occurrence: GB)
  Receive Date: 20240930
  Receipt Date: 20240930
  Transmission Date: 20241017
  Serious: Yes (Other)
  Sender: MSN LABORATORIES
  Company Number: GB-MHRA-TPP31681741C1672377YC1726421600900

PATIENT

DRUGS (24)
  1. PREGABALIN [Suspect]
     Active Substance: PREGABALIN
     Indication: Ill-defined disorder
     Route: 065
  2. DICLOFENAC SODIUM [Concomitant]
     Active Substance: DICLOFENAC\DICLOFENAC SODIUM
     Indication: Ill-defined disorder
     Dosage: ONE EVERY 18 HOURS AS REQUIRED FOR PAIN
     Route: 065
     Dates: start: 20240715, end: 20240725
  3. DICLOFENAC SODIUM [Concomitant]
     Active Substance: DICLOFENAC\DICLOFENAC SODIUM
     Indication: Pain
  4. METHENAMINE HIPPURATE [Concomitant]
     Active Substance: METHENAMINE HIPPURATE
     Indication: Ill-defined disorder
     Dosage: TAKE ONE TWICE DAILY
     Route: 065
     Dates: start: 20240619
  5. QUETIAPINE [Concomitant]
     Active Substance: QUETIAPINE
     Indication: Ill-defined disorder
     Dosage: TAKE FOUR AT NIGHT (TO MAKE 100MG)
     Route: 065
     Dates: start: 20230515
  6. FERROUS FUMARATE [Concomitant]
     Active Substance: FERROUS FUMARATE
     Indication: Ill-defined disorder
     Dosage: TAKE ONE DAILY
     Route: 065
     Dates: start: 20240703, end: 20240828
  7. NITROFURANTOIN [Concomitant]
     Active Substance: NITROFURANTOIN
     Indication: Ill-defined disorder
     Dosage: TAKE ONE TWICE DAILY WITH OR JUST AFTER FOOD
     Route: 065
     Dates: start: 20240807, end: 20240814
  8. AMOXICILLIN\CLAVULANATE POTASSIUM [Concomitant]
     Active Substance: AMOXICILLIN\CLAVULANATE POTASSIUM
     Indication: Ill-defined disorder
     Dosage: TAKE ONE 3 TIMES/DAY
     Route: 065
     Dates: start: 20240827, end: 20240903
  9. BISACODYL [Concomitant]
     Active Substance: BISACODYL
     Indication: Ill-defined disorder
     Dosage: TAKE ONE OR TWO AT BEDTIME
     Route: 065
     Dates: start: 20240827, end: 20240828
  10. PROCHLORPERAZINE [Concomitant]
     Active Substance: PROCHLORPERAZINE
     Indication: Ill-defined disorder
     Dosage: TAKE ONE THREE TIMES DAILY AS REQUIRED
     Route: 065
     Dates: start: 20240729, end: 20240828
  11. CLOTRIMAZOLE [Concomitant]
     Active Substance: CLOTRIMAZOLE
     Indication: Ill-defined disorder
     Dosage: USE AS DIRECTED
     Route: 065
     Dates: start: 20240814, end: 20240911
  12. FLUCONAZOLE [Concomitant]
     Active Substance: FLUCONAZOLE
     Indication: Ill-defined disorder
     Dosage: TAKE ONE AS DIRECTED
     Route: 065
     Dates: start: 20240827, end: 20240828
  13. VORTIOXETINE [Concomitant]
     Active Substance: VORTIOXETINE
     Indication: Ill-defined disorder
     Dosage: TAKE TWO ONCE DAILY (20MG A DAY)
     Route: 065
     Dates: start: 20230515
  14. NYSTATIN [Concomitant]
     Active Substance: NYSTATIN
     Indication: Ill-defined disorder
     Dosage: APPLY 4 TIMES A DAY (QDS) FOR 10 DAYS
     Route: 065
     Dates: start: 20240904, end: 20240914
  15. RIZATRIPTAN [Concomitant]
     Active Substance: RIZATRIPTAN
     Indication: Ill-defined disorder
     Dosage: TAKE ONE AS DIRECTED
     Route: 065
     Dates: start: 20230515
  16. OMEPRAZOLE [Concomitant]
     Active Substance: OMEPRAZOLE
     Indication: Ill-defined disorder
     Dosage: TAKE TWO TWICE DAILY
     Route: 065
     Dates: start: 20230515
  17. PHENERGAN [Concomitant]
     Active Substance: PROMETHAZINE HYDROCHLORIDE
     Indication: Ill-defined disorder
     Dosage: WHEN REQUIRED UP TO TWICE DAILY
     Route: 065
     Dates: start: 20230706
  18. MINERAL OIL\PETROLATUM\WAX, EMULSIFYING [Concomitant]
     Active Substance: MINERAL OIL\PETROLATUM\WAX, EMULSIFYING
     Indication: Ill-defined disorder
     Dosage: USE DAILY AS REQUIRED
     Route: 065
     Dates: start: 20231114
  19. AMITRIPTYLINE HYDROCHLORIDE [Concomitant]
     Active Substance: AMITRIPTYLINE HYDROCHLORIDE
     Indication: Ill-defined disorder
     Dosage: 2 AT NIGHT
     Route: 065
     Dates: start: 20240411
  20. INFYNA PLUS [Concomitant]
     Indication: Ill-defined disorder
     Route: 065
     Dates: start: 20240715, end: 20240812
  21. CONTOUR PLUS [Concomitant]
     Indication: Ill-defined disorder
     Route: 065
     Dates: start: 20240619
  22. FREESTYLE LIBRE 2 [Concomitant]
     Indication: Ill-defined disorder
     Dosage: ONE SENSOR EVERY 2 WEEKS
     Route: 065
     Dates: start: 20240619
  23. MICROLET [Concomitant]
     Indication: Ill-defined disorder
     Route: 065
     Dates: start: 20240619
  24. SHARPSAFE [Concomitant]
     Indication: Ill-defined disorder
     Route: 065
     Dates: start: 20240619

REACTIONS (1)
  - Hypoglycaemia [Recovering/Resolving]
